FAERS Safety Report 19506577 (Version 1)
Quarter: 2021Q3

REPORT INFORMATION
  Report Type: Spontaneous
  Country: US (occurrence: US)
  Receive Date: 20210708
  Receipt Date: 20210708
  Transmission Date: 20211014
  Serious: Yes (Other)
  Sender: FDA-Public Use
  Company Number: None

PATIENT
  Age: 25 Year
  Sex: Male
  Weight: 72.6 kg

DRUGS (2)
  1. VANCOMYCIN [Suspect]
     Active Substance: VANCOMYCIN
     Indication: CELLULITIS
     Route: 041
     Dates: start: 20210407, end: 20210407
  2. MEROPENEM 1 GRAM IV ONCE [Concomitant]
     Dates: start: 20210407, end: 20210407

REACTIONS (2)
  - Injection site urticaria [None]
  - Pruritus [None]

NARRATIVE: CASE EVENT DATE: 20210407
